FAERS Safety Report 15616081 (Version 1)
Quarter: 2018Q4

REPORT INFORMATION
  Report Type: Report from Study
  Country: ZA (occurrence: ZA)
  Receive Date: 20181114
  Receipt Date: 20181114
  Transmission Date: 20190205
  Serious: Yes (Congenital Anomaly, Other)
  Sender: FDA-Public Use
  Company Number: ZA-MYLANLABS-2018M1086027

PATIENT

DRUGS (2)
  1. EZETIMIBE. [Suspect]
     Active Substance: EZETIMIBE
     Indication: TYPE IIA HYPERLIPIDAEMIA
     Dosage: DISCONTINUED IN FIRST MONTH OF PREGNANCY
     Route: 064
  2. ATORVASTATIN [Suspect]
     Active Substance: ATORVASTATIN
     Indication: TYPE IIA HYPERLIPIDAEMIA
     Dosage: 80 MG, QD/DISCONTINUED IN FIRST MONTH OF PREGNANCY
     Route: 064

REACTIONS (2)
  - Limb malformation [Unknown]
  - Foetal exposure during pregnancy [Recovered/Resolved]
